FAERS Safety Report 4162349 (Version 2)
Quarter: 2013Q2

REPORT INFORMATION
  Report Type: Spontaneous
  Country: US (occurrence: None)
  Receive Date: 20040607
  Receipt Date: 20121123
  Transmission Date: 20140414
  Serious: Yes (Other)
  Sender: FDA-Public Use
  Company Number: 355043

PATIENT
  Sex: Female

DRUGS (1)
  1. VICTOZA [Suspect]
     Indication: PRODUCT USED FOR UNKNOWN INDICATION
     Dosage: ORAL
     Route: 058

REACTIONS (8)
  - PREGNANCY [None]
  - NO ADVERSE EVENT [None]
  - ADVERSE EVENT [None]
  - Flatulence [None]
  - Abdominal distension [None]
  - Decreased appetite [None]
  - Abdominal discomfort [None]
  - Diarrhoea [None]
